FAERS Safety Report 5470663-0 (Version None)
Quarter: 2007Q3

REPORT INFORMATION
  Report Type: 
  Country: None (occurrence: None)
  Receive Date: 20070925
  Receipt Date: 20070917
  Transmission Date: 20080115
  Serious: Yes (Hospitalization)
  Sender: FDA-Public Use
  Company Number: 100#08#2007-03445

PATIENT
  Age: 16 Year
  Sex: Female

DRUGS (3)
  1. WARFARIN SODIUM [Suspect]
     Indication: SUICIDE ATTEMPT
     Dosage: 32 X 5 MG (3.2 MG/KG)
     Route: 048
  2. PROPAFENONE HCL [Suspect]
     Indication: SUICIDE ATTEMPT
     Dosage: 15 X 300 MG (90 MG/KG)
  3. DIGOXIN [Suspect]
     Indication: SUICIDE ATTEMPT
     Dosage: 20 X 0.25 MG (0.1 MG/KG)
     Route: 048

REACTIONS (7)
  - CARDIOTOXICITY [None]
  - CENTRAL VENOUS PRESSURE DECREASED [None]
  - DRUG INTERACTION [None]
  - INTERNATIONAL NORMALISED RATIO INCREASED [None]
  - MULTIPLE DRUG OVERDOSE INTENTIONAL [None]
  - SINUS BRADYCARDIA [None]
  - SUICIDE ATTEMPT [None]
